FAERS Safety Report 23860418 (Version 1)
Quarter: 2024Q2

REPORT INFORMATION
  Report Type: Spontaneous
  Country: CH (occurrence: CH)
  Receive Date: 20240516
  Receipt Date: 20240516
  Transmission Date: 20240715
  Serious: Yes (Life-Threatening, Hospitalization, Other)
  Sender: FDA-Public Use
  Company Number: CH-Reliance-000395

PATIENT
  Age: 6 Decade
  Sex: Female

DRUGS (2)
  1. CAPECITABINE [Suspect]
     Active Substance: CAPECITABINE
     Indication: Adenocarcinoma of colon
     Dosage: (1000 MG/M2 ) TWICE A DAY FOR 14 DAYS AND A BREAK OF 7 DAYS
  2. CAPECITABINE [Suspect]
     Active Substance: CAPECITABINE
     Indication: Colon cancer
     Dosage: (1000 MG/M2 ) TWICE A DAY FOR 14 DAYS AND A BREAK OF 7 DAYS

REACTIONS (3)
  - Necrotising colitis [Recovered/Resolved]
  - Acute kidney injury [Recovered/Resolved]
  - Septic shock [Recovered/Resolved]
